FAERS Safety Report 19659966 (Version 1)
Quarter: 2021Q3

REPORT INFORMATION
  Report Type: Report from Study
  Country: US (occurrence: US)
  Receive Date: 20210805
  Receipt Date: 20210805
  Transmission Date: 20211014
  Serious: Yes (Hospitalization, Other)
  Sender: FDA-Public Use
  Company Number: NVSC2019US094099

PATIENT
  Age: 45 Year
  Sex: Female
  Weight: 64.9 kg

DRUGS (1)
  1. MAYZENT [Suspect]
     Active Substance: SIPONIMOD
     Indication: CEREBROVASCULAR ACCIDENT
     Dosage: UNK
     Route: 042
     Dates: start: 20190923, end: 20190927

REACTIONS (2)
  - Acute myocardial infarction [Recovered/Resolved]
  - Ischaemic stroke [Recovering/Resolving]

NARRATIVE: CASE EVENT DATE: 20190927
